FAERS Safety Report 8453824-8 (Version None)
Quarter: 2012Q2

REPORT INFORMATION
  Report Type: 
  Country: None (occurrence: None)
  Receive Date: 20120620
  Receipt Date: 20120611
  Transmission Date: 20120825
  Serious: Yes (Other)
  Sender: FDA-Public Use
  Company Number: US-VERTEX PHARMACEUTICALS INC.-AE-2012-007032

PATIENT
  Sex: Female
  Weight: 75.364 kg

DRUGS (5)
  1. RIBASPHERE [Concomitant]
     Indication: HEPATITIS C
     Dates: start: 20120420
  2. VITAMIN TAB [Concomitant]
  3. PEGASYS [Concomitant]
     Indication: HEPATITIS C
     Route: 058
     Dates: start: 20120420
  4. INCIVEK [Suspect]
     Indication: HEPATITIS C
     Route: 048
     Dates: start: 20120420
  5. CALCIUM D [Concomitant]

REACTIONS (7)
  - ANAEMIA [None]
  - INJECTION SITE PRURITUS [None]
  - FATIGUE [None]
  - NEUTROPHIL COUNT DECREASED [None]
  - INJECTION SITE ERYTHEMA [None]
  - PAIN [None]
  - INJECTION SITE RASH [None]
